FAERS Safety Report 10704259 (Version 3)
Quarter: 2015Q1

REPORT INFORMATION
  Report Type: Report from Study
  Country: AR (occurrence: AR)
  Receive Date: 20150112
  Receipt Date: 20150210
  Transmission Date: 20150721
  Serious: Yes (Hospitalization, Other)
  Sender: FDA-Public Use
  Company Number: PHHY2014AR147129

PATIENT
  Age: 57 Year
  Sex: Male

DRUGS (2)
  1. EXJADE [Suspect]
     Active Substance: DEFERASIROX
     Indication: IRON OVERLOAD
     Dosage: 1500 MG, UNK
     Route: 048
     Dates: start: 2009
  2. EXJADE [Suspect]
     Active Substance: DEFERASIROX
     Dosage: 1250 MG, UNK
     Route: 048

REACTIONS (2)
  - Lung disorder [Recovered/Resolved]
  - Renal failure [Recovered/Resolved]

NARRATIVE: CASE EVENT DATE: 20150107
